FAERS Safety Report 7245616-2 (Version None)
Quarter: 2011Q1

REPORT INFORMATION
  Report Type: 
  Country: None (occurrence: None)
  Receive Date: 20110126
  Receipt Date: 20110112
  Transmission Date: 20110831
  Serious: Yes (Hospitalization)
  Sender: FDA-Public Use
  Company Number: PHHY2011IR03386

PATIENT
  Age: 65 Year
  Sex: Female

DRUGS (5)
  1. ENALAPRIL [Concomitant]
     Dosage: 5 MG, BID
  2. ALPRAZOLAM [Concomitant]
     Dosage: 0.5 MG AT NIGHT
  3. METFORMIN [Concomitant]
     Dosage: 500 MG, TID
  4. PREDNISOLONE [Suspect]
     Indication: TEMPORAL ARTERITIS
     Dosage: 60 MG PER DAY
  5. IBUPROFEN [Concomitant]
     Dosage: 400 MG

REACTIONS (21)
  - NAUSEA [None]
  - OCCULT BLOOD [None]
  - VOMITING [None]
  - PYREXIA [None]
  - BRADYCARDIA [None]
  - METABOLIC ACIDOSIS [None]
  - MUCOSAL INFECTION [None]
  - HEART RATE INCREASED [None]
  - TOXICITY TO VARIOUS AGENTS [None]
  - WHEEZING [None]
  - CHILLS [None]
  - MALAISE [None]
  - DEPRESSED LEVEL OF CONSCIOUSNESS [None]
  - ESCHERICHIA INFECTION [None]
  - STRONGYLOIDIASIS [None]
  - ABDOMINAL PAIN [None]
  - RASH MACULO-PAPULAR [None]
  - DYSPNOEA [None]
  - GASTRIC DILATATION [None]
  - RESPIRATORY RATE INCREASED [None]
  - CHOLELITHIASIS [None]
